FAERS Safety Report 4745861-1 (Version None)
Quarter: 2005Q3

REPORT INFORMATION
  Report Type: 
  Country: None (occurrence: None)
  Receive Date: 20050816
  Receipt Date: 20041118
  Transmission Date: 20060218
  Serious: Yes (Death, Hospitalization)
  Sender: FDA-Public Use
  Company Number: 200414346FR

PATIENT
  Age: 61 Year
  Sex: Female
  Weight: 90 kg

DRUGS (10)
  1. TAXOTERE [Suspect]
     Indication: BREAST CANCER
     Route: 042
     Dates: start: 20040302, end: 20040302
  2. EPIRUBICIN [Suspect]
     Indication: BREAST CANCER
     Route: 042
     Dates: start: 20040303, end: 20040303
  3. CYCLOPHOSPHAMIDE [Suspect]
     Indication: BREAST CANCER
     Route: 042
     Dates: start: 20040303, end: 20040303
  4. RYTHMOL [Concomitant]
  5. HYPERIUM [Concomitant]
  6. DIAMICRON [Concomitant]
  7. MEDIATOR [Concomitant]
  8. LODALES [Concomitant]
  9. ONDANSETRON [Concomitant]
     Route: 042
  10. SOLU-MEDROL [Concomitant]
     Route: 042

REACTIONS (15)
  - BLOOD CREATININE INCREASED [None]
  - BLOOD SODIUM DECREASED [None]
  - BONE MARROW DEPRESSION [None]
  - CARDIAC ARREST [None]
  - CONFUSIONAL STATE [None]
  - DIARRHOEA [None]
  - ESCHERICHIA BACTERAEMIA [None]
  - FEBRILE NEUTROPENIA [None]
  - GASTROINTESTINAL DISORDER [None]
  - GENERAL PHYSICAL HEALTH DETERIORATION [None]
  - HAEMOGLOBIN DECREASED [None]
  - NEUTROPENIA [None]
  - PYREXIA [None]
  - SEPTIC SHOCK [None]
  - VOMITING [None]
